FAERS Safety Report 19284910 (Version 1)
Quarter: 2021Q2

REPORT INFORMATION
  Report Type: Spontaneous
  Country: GB (occurrence: GB)
  Receive Date: 20210521
  Receipt Date: 20210521
  Transmission Date: 20210717
  Serious: Yes (Other)
  Sender: FDA-Public Use
  Company Number: GB-TEVA-2021-GB-1912879

PATIENT
  Age: 88 Year
  Sex: Female
  Weight: 53 kg

DRUGS (15)
  1. FLUVASTATIN [Concomitant]
     Active Substance: FLUVASTATIN SODIUM
     Indication: ILL-DEFINED DISORDER
     Dosage: 1 DOSAGE FORMS DAILY; EARLY EVENING
     Dates: start: 20200715
  2. ZOPICLONE [Concomitant]
     Active Substance: ZOPICLONE
     Indication: ILL-DEFINED DISORDER
     Dosage: 1 DOSAGE FORMS DAILY; AT NIGHT PRN
     Dates: start: 20210303, end: 20210317
  3. RAMIPRIL. [Suspect]
     Active Substance: RAMIPRIL
     Indication: ILL-DEFINED DISORDER
     Route: 065
     Dates: start: 20210510
  4. GLYCERYL TRINITRATE [Concomitant]
     Active Substance: NITROGLYCERIN
     Indication: ILL-DEFINED DISORDER
     Dosage: ONE PUFF AS NEEDED FOR CHEST PAIN
     Dates: start: 20210120
  5. HYPROMELLOSE [Concomitant]
     Active Substance: HYPROMELLOSES
     Indication: ILL-DEFINED DISORDER
     Dosage: ONE DROP AS NEEDED
     Dates: start: 20200310
  6. ACIDEX [Concomitant]
     Indication: ILL-DEFINED DISORDER
     Dosage: TWO TO FOUR 5ML SPOONFULS 4 TIMES A DAY AFTER M...
     Dates: start: 20210113
  7. EDOXABAN [Concomitant]
     Active Substance: EDOXABAN TOSYLATE
     Indication: ILL-DEFINED DISORDER
     Dosage: 1 DOSAGE FORMS DAILY; EVERY EVENING
     Dates: start: 20210113
  8. ALENDRONIC ACID [Concomitant]
     Active Substance: ALENDRONIC ACID
     Indication: ILL-DEFINED DISORDER
     Dosage: UNIT DOSE : 1 DOSAGE FORMS
     Dates: start: 20201027
  9. ATENOLOL. [Concomitant]
     Active Substance: ATENOLOL
     Indication: ILL-DEFINED DISORDER
     Dosage: 1 DOSAGE FORMS DAILY;
     Dates: start: 20201209
  10. FAMOTIDINE. [Concomitant]
     Active Substance: FAMOTIDINE
     Indication: ILL-DEFINED DISORDER
     Dosage: 1 DOSAGE FORMS DAILY; AS DIRECTED
     Dates: start: 20210205
  11. MONOMIL XL [Concomitant]
     Active Substance: ISOSORBIDE MONONITRATE
     Indication: ILL-DEFINED DISORDER
     Dosage: .5 DOSAGE FORMS DAILY; TAKE HALF TABLET (30MG)EVERY MORNING
     Dates: start: 20200715
  12. NICORANDIL [Concomitant]
     Active Substance: NICORANDIL
     Indication: ILL-DEFINED DISORDER
     Dosage: 2 DOSAGE FORMS DAILY; UNIT DOSE : 1 DOSAGE FORMS
     Dates: start: 20201209
  13. OXYBUTYNIN. [Concomitant]
     Active Substance: OXYBUTYNIN CHLORIDE
     Indication: ILL-DEFINED DISORDER
     Dosage: 2 DOSAGE FORMS DAILY; UNIT DOSE : 1 DOSAGE FORMS
     Dates: start: 20210127
  14. RAMIPRIL. [Concomitant]
     Active Substance: RAMIPRIL
     Indication: ILL-DEFINED DISORDER
     Dosage: 1 DOSAGE FORMS DAILY;
     Dates: start: 20210422
  15. FUROSEMIDE. [Concomitant]
     Active Substance: FUROSEMIDE
     Indication: ILL-DEFINED DISORDER
     Dosage: 1 DOSAGE FORMS DAILY; EACH MORNING
     Dates: start: 20210331

REACTIONS (2)
  - Cough [Recovering/Resolving]
  - Balance disorder [Recovering/Resolving]

NARRATIVE: CASE EVENT DATE: 20210510
